FAERS Safety Report 24652173 (Version 4)
Quarter: 2025Q1

REPORT INFORMATION
  Report Type: Spontaneous
  Country: JP (occurrence: JP)
  Receive Date: 20241122
  Receipt Date: 20250317
  Transmission Date: 20250408
  Serious: Yes (Death, Other)
  Sender: GENMAB
  Company Number: JP-GENMAB-2024-03787

PATIENT
  Age: 80 Year
  Sex: Male

DRUGS (2)
  1. EPKINLY [Suspect]
     Active Substance: EPCORITAMAB-BYSP
     Indication: Diffuse large B-cell lymphoma refractory
     Route: 058
  2. PREDNISOLONE [Concomitant]
     Active Substance: PREDNISOLONE
     Indication: Prophylaxis

REACTIONS (6)
  - Diffuse large B-cell lymphoma refractory [Fatal]
  - Cholangitis [Unknown]
  - Thrombocytopenia [Unknown]
  - Lymphopenia [Unknown]
  - Anaemia [Unknown]
  - Cytokine release syndrome [Recovered/Resolved]
